FAERS Safety Report 7412258-5 (Version None)
Quarter: 2011Q2

REPORT INFORMATION
  Report Type: 
  Country: None (occurrence: None)
  Receive Date: 20110413
  Receipt Date: 20110330
  Transmission Date: 20111010
  Serious: Yes (Hospitalization)
  Sender: FDA-Public Use
  Company Number: GB-ROCHE-762521

PATIENT
  Sex: Female
  Weight: 60.9 kg

DRUGS (3)
  1. TOCILIZUMAB [Suspect]
     Indication: RHEUMATOID ARTHRITIS
     Dosage: 8MG PER KG: DOSE FORM, DATE OF LAST DOSE PRIOR TO SAE.: 22 FEBRUARY 2011
     Route: 042
     Dates: start: 20101221
  2. SULFASALAZINE [Concomitant]
     Dates: start: 20091215
  3. HYDROXYCHLOROQUINE SULFATE [Concomitant]
     Dates: start: 20091215

REACTIONS (1)
  - NEUTROPENIA [None]
